FAERS Safety Report 19034697 (Version 2)
Quarter: 2021Q1

REPORT INFORMATION
  Report Type: Spontaneous
  Country: PT (occurrence: PT)
  Receive Date: 20210319
  Receipt Date: 20210331
  Transmission Date: 20210420
  Serious: Yes (Life-Threatening, Other)
  Sender: FDA-Public Use
  Company Number: PT-BAXTER-2021BAX005038

PATIENT
  Sex: Male

DRUGS (4)
  1. ETOPOSIDE. [Suspect]
     Active Substance: ETOPOSIDE
     Indication: CNS GERMINOMA
     Route: 065
  2. HOLOXAN 2000 MG PO PARA SOLUCAO INJECTAVEL [Suspect]
     Active Substance: IFOSFAMIDE
     Indication: CNS GERMINOMA
     Route: 065
  3. MEMANTINE. [Concomitant]
     Active Substance: MEMANTINE
     Indication: PRODUCT USED FOR UNKNOWN INDICATION
     Route: 065
  4. CARBOPLATIN. [Suspect]
     Active Substance: CARBOPLATIN
     Indication: CNS GERMINOMA
     Route: 065

REACTIONS (6)
  - Memory impairment [Recovered/Resolved]
  - Hepatotoxicity [Unknown]
  - Thrombocytopenia [Unknown]
  - Disturbance in attention [Recovered/Resolved]
  - Demyelination [Recovered/Resolved]
  - Neutropenia [Unknown]
